FAERS Safety Report 6779581-9 (Version None)
Quarter: 2010Q2

REPORT INFORMATION
  Report Type: 
  Country: None (occurrence: None)
  Receive Date: 20100618
  Receipt Date: 20100611
  Transmission Date: 20101027
  Serious: Yes (Other)
  Sender: FDA-Public Use
  Company Number: A0864546A

PATIENT
  Sex: Female

DRUGS (9)
  1. AVANDAMET [Suspect]
     Indication: BLOOD GLUCOSE FLUCTUATION
     Dosage: 1TAB TWICE PER DAY
     Route: 048
     Dates: start: 20100416
  2. AVANDIA [Suspect]
     Indication: BLOOD GLUCOSE FLUCTUATION
     Route: 048
  3. FEMARA [Suspect]
     Indication: DRUG USE FOR UNKNOWN INDICATION
     Route: 065
  4. UNKNOWN ANTI-DIABETIC MEDICATION [Suspect]
  5. CYMBALTA [Concomitant]
  6. BLOOD PRESSURE MEDICATION [Concomitant]
  7. VITAMIN C [Concomitant]
  8. THYROID TAB [Concomitant]
  9. CALCIUM CARBONATE [Concomitant]

REACTIONS (9)
  - ANAEMIA [None]
  - ARTHRALGIA [None]
  - CONDITION AGGRAVATED [None]
  - DEHYDRATION [None]
  - FATIGUE [None]
  - GINGIVAL DISORDER [None]
  - MYALGIA [None]
  - WEIGHT DECREASED [None]
  - WEIGHT INCREASED [None]
